FAERS Safety Report 4388499-0 (Version None)
Quarter: 2004Q2

REPORT INFORMATION
  Report Type: 
  Country: None (occurrence: None)
  Receive Date: 20040624
  Receipt Date: 20040615
  Transmission Date: 20050107
  Serious: Yes (Hospitalization)
  Sender: FDA-Public Use
  Company Number: 207183

PATIENT
  Age: 51 Year
  Sex: Female

DRUGS (1)
  1. RITUXAN [Suspect]
     Indication: LYMPHOMA
     Dosage: 60 MG, UNK, UNK
     Dates: start: 20040316

REACTIONS (1)
  - HEPATIC FUNCTION ABNORMAL [None]
